FAERS Safety Report 6266740-7 (Version None)
Quarter: 2009Q3

REPORT INFORMATION
  Report Type: 
  Country: None (occurrence: None)
  Receive Date: 20090714
  Receipt Date: 20090701
  Transmission Date: 20100115
  Serious: Yes (Death)
  Sender: FDA-Public Use
  Company Number: GB-RANBAXY-2009RR-25209

PATIENT
  Age: 82 Year
  Sex: Male

DRUGS (27)
  1. CIPROFLOXACIN [Suspect]
     Indication: PNEUMONIA
     Dosage: 400 MG, UNK
     Route: 042
     Dates: start: 20050628, end: 20050630
  2. CIPROFLOXACIN [Suspect]
     Dosage: UNK
  3. CIPROFLOXACIN [Suspect]
     Dosage: UNK
     Route: 048
     Dates: start: 20050630, end: 20050702
  4. FUROSEMIDE [Concomitant]
     Indication: URINE OUTPUT DECREASED
     Dosage: 250 MG, QD
     Route: 042
     Dates: start: 20050630, end: 20050708
  5. FUROSEMIDE [Suspect]
     Dosage: 40 MG, QD
     Route: 048
  6. XYNTABALIN [Suspect]
     Indication: CATHETER PLACEMENT
     Dosage: 120 MG, UNK
     Route: 030
     Dates: start: 20050628, end: 20050628
  7. CALCICHEW D3 [Concomitant]
     Indication: DRUG USE FOR UNKNOWN INDICATION
     Dosage: 2 DF, QD
     Route: 048
     Dates: start: 20050628, end: 20050628
  8. CEFTRIAXONE [Concomitant]
     Indication: DRUG USE FOR UNKNOWN INDICATION
     Dosage: 1 G, UNK
     Route: 042
     Dates: start: 20050701, end: 20050704
  9. DALTEPARIN SODIUM [Concomitant]
     Indication: DRUG USE FOR UNKNOWN INDICATION
     Dosage: 1500 IU, UNK
     Route: 058
     Dates: start: 20050705, end: 20050706
  10. DALTEPARIN SODIUM [Concomitant]
     Dosage: 5000 IU, UNK
     Route: 058
     Dates: start: 20050629, end: 20050629
  11. DOCUSATE [Concomitant]
     Indication: DRUG USE FOR UNKNOWN INDICATION
     Dosage: 400 MG, UNK
     Route: 048
     Dates: start: 20050628, end: 20050628
  12. DOTHIEPIN HYDROCHLORIDE [Concomitant]
     Indication: DRUG USE FOR UNKNOWN INDICATION
     Dosage: 75 MG, UNK
     Route: 048
     Dates: start: 20050628, end: 20050629
  13. HALOPERIDOL [Concomitant]
     Indication: DRUG USE FOR UNKNOWN INDICATION
     Dosage: 5 MG, UNK
     Route: 030
     Dates: start: 20050630, end: 20050701
  14. HYOSCINE [Concomitant]
     Indication: DRUG USE FOR UNKNOWN INDICATION
     Dosage: 400 UG, UNK
     Route: 058
     Dates: start: 20050630, end: 20050710
  15. IPRATROPIUM BROMIDE [Concomitant]
     Indication: DRUG USE FOR UNKNOWN INDICATION
     Dosage: 30000 UG, UNK
     Route: 055
     Dates: start: 20050705
  16. METRONIDAZOLE [Concomitant]
     Indication: DRUG USE FOR UNKNOWN INDICATION
     Dosage: 1500 MG, UNK
     Route: 042
     Dates: start: 20050701, end: 20050704
  17. METRONIDAZOLE [Concomitant]
     Dosage: 1200 MG, UNK
     Route: 048
     Dates: start: 20050705, end: 20050706
  18. METRONIDAZOLE [Concomitant]
     Dosage: UNK
     Dates: start: 20050708, end: 20050709
  19. MIDAZOLAM HCL [Concomitant]
     Indication: DRUG USE FOR UNKNOWN INDICATION
     Dosage: 5 MG, UNK
     Route: 058
     Dates: start: 20050708
  20. MORPHINE [Concomitant]
     Indication: DRUG USE FOR UNKNOWN INDICATION
     Dosage: 5 MG, UNK
     Route: 058
     Dates: start: 20050708
  21. MSN CONTINUS [Concomitant]
     Indication: DRUG USE FOR UNKNOWN INDICATION
     Dosage: 30 MG, UNK
     Route: 048
     Dates: start: 20050628, end: 20050629
  22. OMEPRAZOLE [Concomitant]
     Indication: DRUG USE FOR UNKNOWN INDICATION
     Dosage: 20 MG, UNK
     Route: 048
     Dates: start: 20050628, end: 20050701
  23. ALBUTEROL [Concomitant]
     Indication: DRUG USE FOR UNKNOWN INDICATION
     Dosage: 2.5 MG, UNK
     Route: 055
     Dates: start: 20050705
  24. SANDO-K [Concomitant]
     Indication: DRUG USE FOR UNKNOWN INDICATION
     Dosage: 2 DF, BID
     Route: 048
     Dates: start: 20050708, end: 20050709
  25. SODIUM BICARBONATE [Concomitant]
     Indication: DRUG USE FOR UNKNOWN INDICATION
     Dosage: 3.6 G, UNK
     Route: 048
     Dates: start: 20050708
  26. TERBUTALINE SULFATE [Concomitant]
     Indication: DRUG USE FOR UNKNOWN INDICATION
     Dosage: 2 DF, PRN
     Route: 055
     Dates: start: 20050628, end: 20050705
  27. WARFARIN SODIUM [Concomitant]
     Indication: DRUG USE FOR UNKNOWN INDICATION
     Dosage: 1 MG, UNK
     Route: 048
     Dates: start: 20050628, end: 20050628

REACTIONS (1)
  - RENAL FAILURE [None]
